FAERS Safety Report 13883113 (Version 1)
Quarter: 2017Q3

REPORT INFORMATION
  Report Type: Report from Study
  Country: US (occurrence: IE)
  Receive Date: 20170818
  Receipt Date: 20170818
  Transmission Date: 20171127
  Serious: Yes (Hospitalization)
  Sender: FDA-Public Use
  Company Number: US-SUNOVION-2017SUN003671

PATIENT

DRUGS (12)
  1. SALAMOL [Concomitant]
     Active Substance: ALBUTEROL
  2. FUROSEMIDE. [Concomitant]
     Active Substance: FUROSEMIDE
  3. EMOVATE [Concomitant]
     Dosage: UNK
  4. COMBIVENT [Concomitant]
     Active Substance: ALBUTEROL SULFATE\IPRATROPIUM BROMIDE
  5. DOXYCYCLINE. [Concomitant]
     Active Substance: DOXYCYCLINE
  6. RAMIPRIL. [Concomitant]
     Active Substance: RAMIPRIL
  7. INDACATEROL AND GLYCOPYRROLATE [Suspect]
     Active Substance: GLYCOPYRROLATE\INDACATEROL MALEATE
     Indication: CHRONIC OBSTRUCTIVE PULMONARY DISEASE
     Dosage: 1 DF (43 UG GLYCOPYRRONIUM, 85 UG INDACATEROL, UNK
     Route: 055
     Dates: start: 20140908
  8. MODECATE [Concomitant]
     Active Substance: FLUPHENAZINE DECANOATE
  9. PANTOPRAZOLE [Concomitant]
     Active Substance: PANTOPRAZOLE
  10. LACTULOSE. [Concomitant]
     Active Substance: LACTULOSE
  11. WARFARIN [Concomitant]
     Active Substance: WARFARIN
  12. GALFER [Concomitant]
     Active Substance: IRON

REACTIONS (7)
  - Haematochezia [Recovering/Resolving]
  - Chronic obstructive pulmonary disease [Recovering/Resolving]
  - Dyspnoea [Recovering/Resolving]
  - Haemorrhoids [Recovering/Resolving]
  - Haemolytic anaemia [Recovering/Resolving]
  - Chest pain [Recovering/Resolving]
  - Infective exacerbation of chronic obstructive airways disease [Recovering/Resolving]

NARRATIVE: CASE EVENT DATE: 20161006
